FAERS Safety Report 18639550 (Version 1)
Quarter: 2020Q4

REPORT INFORMATION
  Report Type: Spontaneous
  Country: DE (occurrence: DE)
  Receive Date: 20201219
  Receipt Date: 20201219
  Transmission Date: 20210114
  Serious: Yes (Hospitalization)
  Sender: FDA-Public Use
  Company Number: NVSC2020DE332054

PATIENT
  Age: 31 Year
  Sex: Female

DRUGS (5)
  1. CARIPRAZINE [Suspect]
     Active Substance: CARIPRAZINE
     Dosage: 3 MG, QD
     Route: 065
     Dates: start: 20200108, end: 20200117
  2. CARIPRAZINE [Suspect]
     Active Substance: CARIPRAZINE
     Dosage: 1.5 MG, QD
     Route: 065
     Dates: start: 20200118, end: 20200120
  3. QUETIAPINE. [Suspect]
     Active Substance: QUETIAPINE
     Indication: PRODUCT USED FOR UNKNOWN INDICATION
     Dosage: 100 MG, QD
     Route: 065
     Dates: start: 20200107, end: 20200210
  4. QUETIAPINE. [Suspect]
     Active Substance: QUETIAPINE
     Dosage: 200 MG, QD PROLONGED-RELEASE
     Route: 065
     Dates: start: 20200107, end: 20200210
  5. CARIPRAZINE [Suspect]
     Active Substance: CARIPRAZINE
     Indication: PRODUCT USED FOR UNKNOWN INDICATION
     Dosage: 1.5 MG, QD
     Route: 065
     Dates: start: 20200103, end: 20200107

REACTIONS (2)
  - Akathisia [Not Recovered/Not Resolved]
  - Increased appetite [Unknown]

NARRATIVE: CASE EVENT DATE: 20200114
